FAERS Safety Report 5793985-2 (Version None)
Quarter: 2008Q2

REPORT INFORMATION
  Report Type: 
  Country: None (occurrence: None)
  Receive Date: 20080627
  Receipt Date: 20080616
  Transmission Date: 20081010
  Serious: Yes (Hospitalization, Other)
  Sender: FDA-Public Use
  Company Number: US-PFIZER INC-2007102477

PATIENT
  Sex: Male
  Weight: 81.6 kg

DRUGS (5)
  1. DILANTIN [Suspect]
     Indication: CONVULSION
  2. PHENYTOIN [Suspect]
     Dates: start: 20050601, end: 20050601
  3. PHENOBARBITONE [Concomitant]
  4. MORPHINE [Concomitant]
  5. ALL OTHER THERAPEUTIC PRODUCTS [Concomitant]
     Dates: start: 20050601

REACTIONS (6)
  - ANTICONVULSANT DRUG LEVEL DECREASED [None]
  - ATAXIA [None]
  - COLLAPSE OF LUNG [None]
  - CONVULSION [None]
  - MUSCLE TIGHTNESS [None]
  - SPINAL DISORDER [None]
